FAERS Safety Report 25060435 (Version 1)
Quarter: 2025Q1

REPORT INFORMATION
  Report Type: Spontaneous
  Country: GR (occurrence: GR)
  Receive Date: 20250310
  Receipt Date: 20250310
  Transmission Date: 20250409
  Serious: Yes (Hospitalization)
  Sender: SANDOZ
  Company Number: GR-AMGEN-GRCSP2025039067

PATIENT
  Age: 51 Year
  Sex: Male

DRUGS (2)
  1. ADALIMUMAB [Suspect]
     Active Substance: ADALIMUMAB
     Indication: Arthritis
     Route: 065
  2. METHOTREXATE [Concomitant]
     Active Substance: METHOTREXATE
     Indication: Arthritis
     Route: 065

REACTIONS (3)
  - Polyarthritis [Recovered/Resolved]
  - Gout [Recovered/Resolved]
  - Faeces discoloured [Recovered/Resolved]
